FAERS Safety Report 17663062 (Version 1)
Quarter: 2020Q2

REPORT INFORMATION
  Report Type: Spontaneous
  Country: US (occurrence: US)
  Receive Date: 20200413
  Receipt Date: 20200413
  Transmission Date: 20200713
  Serious: No
  Sender: FDA-Public Use
  Company Number: US-NEXGEN PHARMA, INC.-2082765

PATIENT
  Age: 22 Year
  Sex: Female

DRUGS (1)
  1. CHENODAL [Suspect]
     Active Substance: CHENODIOL
     Indication: BILIARY TRACT DISORDER
     Route: 048
     Dates: start: 20190814

REACTIONS (1)
  - Mental status changes [Unknown]
